FAERS Safety Report 12652122 (Version 5)
Quarter: 2017Q3

REPORT INFORMATION
  Report Type: Spontaneous
  Country: TW (occurrence: TW)
  Receive Date: 20160815
  Receipt Date: 20170727
  Transmission Date: 20171127
  Serious: Yes (Other)
  Sender: FDA-Public Use
  Company Number: TW-GLAXOSMITHKLINE-TW2016117115

PATIENT
  Age: 33 Year
  Sex: Female

DRUGS (3)
  1. RITODRINE [Concomitant]
     Active Substance: RITODRINE
     Indication: PREMATURE LABOUR
     Dates: start: 201308
  2. ACICLOVIR [Suspect]
     Active Substance: ACYCLOVIR
     Indication: VARICELLA
     Dosage: 750 MG, UNK
     Route: 042
     Dates: start: 20130823, end: 20130826
  3. NIFEDIPINE. [Concomitant]
     Active Substance: NIFEDIPINE
     Indication: PREMATURE LABOUR
     Dosage: UNK
     Dates: start: 201308

REACTIONS (4)
  - Acute kidney injury [Recovering/Resolving]
  - Nephropathy toxic [Recovering/Resolving]
  - Nephropathy [Recovering/Resolving]
  - Maternal exposure during pregnancy [Unknown]

NARRATIVE: CASE EVENT DATE: 20130823
